FAERS Safety Report 7428923-X (Version None)
Quarter: 2011Q2

REPORT INFORMATION
  Report Type: 
  Country: None (occurrence: None)
  Receive Date: 20110413
  Receipt Date: 20110331
  Transmission Date: 20111010
  Serious: Yes (Life-Threatening, Other)
  Sender: FDA-Public Use
  Company Number: FK201100611

PATIENT
  Age: 27 Year
  Sex: Female

DRUGS (2)
  1. ONDANSETRON HYDROCHLORIDE [Suspect]
     Indication: ANTIEMETIC SUPPORTIVE CARE
     Dosage: 4 MG, INTRAVENOUS (NOT OTHERWISE SPECIFIED)
     Route: 042
  2. METHYLPREDNISOLONE [Concomitant]

REACTIONS (3)
  - BRADYCARDIA [None]
  - ELECTROCARDIOGRAM QT PROLONGED [None]
  - HYPOTENSION [None]
